FAERS Safety Report 21652531 (Version 1)
Quarter: 2022Q4

REPORT INFORMATION
  Report Type: Spontaneous
  Country: US (occurrence: None)
  Receive Date: 20221124
  Receipt Date: 20221124
  Transmission Date: 20230113
  Serious: Yes (Hospitalization)
  Sender: FDA-Public Use
  Company Number: None

PATIENT
  Sex: Female

DRUGS (16)
  1. ENVARSUS XR [Suspect]
     Active Substance: TACROLIMUS
     Indication: Liver transplant
     Dosage: FREQUENCY : 3 TIMES A DAY;?
     Route: 048
     Dates: start: 20180803
  2. ALENDRONATE [Concomitant]
     Active Substance: ALENDRONATE SODIUM
  3. CELLCEPT [Concomitant]
     Active Substance: MYCOPHENOLATE MOFETIL
  4. CENTRUM TAB SILVER [Concomitant]
  5. GENTEAL DRO OPTH [Concomitant]
  6. LASIX TAB [Concomitant]
  7. LOSARTAN POT TAB [Concomitant]
  8. METOPROLOL TAB ER [Concomitant]
  9. MULTI-B-PLUS TAB [Concomitant]
  10. MYCOPHENOLATE MOFETIL [Concomitant]
     Active Substance: MYCOPHENOLATE MOFETIL
  11. OMEPRAZOLE SODIUM [Concomitant]
     Active Substance: OMEPRAZOLE SODIUM
  12. OXYBUTYNIN TAB ER [Concomitant]
  13. PROGRAF [Concomitant]
     Active Substance: TACROLIMUS
  14. RIFAMPIN CAP [Concomitant]
  15. TRIAMT/HCTZ TAB [Concomitant]
  16. URSODIOL CAP [Concomitant]

REACTIONS (1)
  - Cardiac failure [None]

NARRATIVE: CASE EVENT DATE: 20221101
